FAERS Safety Report 14918943 (Version 1)
Quarter: 2018Q2

REPORT INFORMATION
  Report Type: Spontaneous
  Country: US (occurrence: US)
  Receive Date: 20180502
  Receipt Date: 20180502
  Transmission Date: 20180711
  Serious: Yes (Life-Threatening)
  Sender: FDA-Public Use
  Company Number: None

PATIENT
  Age: 59 Year
  Sex: Male

DRUGS (1)
  1. GABAPENTIN. [Suspect]
     Active Substance: GABAPENTIN
     Indication: SUICIDAL IDEATION
     Route: 048
     Dates: start: 20160304, end: 20171204

REACTIONS (4)
  - Suicidal ideation [None]
  - Delirium [None]
  - Sedation [None]
  - Depression [None]

NARRATIVE: CASE EVENT DATE: 20171204
